FAERS Safety Report 8135502-8 (Version None)
Quarter: 2012Q1

REPORT INFORMATION
  Report Type: 
  Country: None (occurrence: None)
  Receive Date: 20120214
  Receipt Date: 20120131
  Transmission Date: 20120608
  Serious: Yes (Death, Hospitalization)
  Sender: FDA-Public Use
  Company Number: US-MUTUAL PHARMACEUTICAL COMPANY, INC.-SFTM20120003

PATIENT
  Sex: 0

DRUGS (2)
  1. LEUCOVORIN CALCIUM [Suspect]
     Indication: PROPHYLAXIS
     Route: 048
  2. TRIMETHOPRIM + SULFAMETHOXAZOLE [Suspect]
     Indication: PNEUMOCYSTIS JIROVECI PNEUMONIA
     Route: 042

REACTIONS (3)
  - PNEUMOCYSTIS JIROVECI PNEUMONIA [None]
  - TREATMENT FAILURE [None]
  - DRUG INTERACTION [None]
